FAERS Safety Report 4309283-X (Version None)
Quarter: 2004Q1

REPORT INFORMATION
  Report Type: 
  Country: None (occurrence: None)
  Receive Date: 20040301
  Receipt Date: 20040217
  Transmission Date: 20041129
  Serious: Yes (Death)
  Sender: FDA-Public Use
  Company Number: US-JNJFOC-20040204110

PATIENT
  Age: 47 Year
  Sex: Male

DRUGS (2)
  1. DURAGESIC [Suspect]
     Dosage: 25 UG/HR, TRANSDERMAL
     Route: 062
     Dates: start: 20030809
  2. MORPHINE [Concomitant]

REACTIONS (1)
  - OVERDOSE [None]
